FAERS Safety Report 6041247-0 (Version None)
Quarter: 2009Q1

REPORT INFORMATION
  Report Type: 
  Country: None (occurrence: None)
  Receive Date: 20090116
  Receipt Date: 20081003
  Transmission Date: 20090719
  Serious: No
  Sender: FDA-Public Use
  Company Number: US-BRISTOL-MYERS SQUIBB COMPANY-14343107

PATIENT
  Age: 65 Year
  Sex: Female
  Weight: 82 kg

DRUGS (14)
  1. ABILIFY [Suspect]
     Indication: DEPRESSION
     Dosage: 10MG+2MG-EXP:SEP09+MAR2010.DOSE INC 7.5MG,DEC,INC 10MG(LOT#7K31303A)+ DEC 5MG.TOOK 2MG(LOT#8C45777A)
     Dates: start: 20080101
  2. SYNTHROID [Concomitant]
  3. CYMBALTA [Concomitant]
  4. WELLBUTRIN [Concomitant]
  5. LYRICA [Concomitant]
  6. MELOXICAM [Concomitant]
  7. CRESTOR [Concomitant]
  8. OMEPRAZOLE [Concomitant]
  9. FEXOFENADINE HCL [Concomitant]
  10. FLONASE [Concomitant]
  11. COMBIVENT [Concomitant]
  12. PULMICORT-100 [Concomitant]
  13. ESTRADIOL [Concomitant]
  14. PROGESTERONE [Concomitant]

REACTIONS (2)
  - ALOPECIA [None]
  - TREMOR [None]
